FAERS Safety Report 18423352 (Version 1)
Quarter: 2020Q4

REPORT INFORMATION
  Report Type: Spontaneous
  Country: US (occurrence: US)
  Receive Date: 20201024
  Receipt Date: 20201024
  Transmission Date: 20210114
  Serious: No
  Sender: FDA-Public Use
  Company Number: NVSC2020US281152

PATIENT
  Sex: Male
  Weight: 73 kg

DRUGS (2)
  1. AFINITOR [Suspect]
     Active Substance: EVEROLIMUS
     Indication: PRODUCT USED FOR UNKNOWN INDICATION
     Dosage: UNK (OFF FOR APPROX 6 DAYS)
     Route: 065
  2. LENVIMA [Suspect]
     Active Substance: LENVATINIB
     Indication: RENAL CANCER
     Dosage: 18 MG (1-10MG/2-4MG DAILY) (OFF FOR APPROX 6 DAYS)
     Route: 048
     Dates: start: 20200727

REACTIONS (3)
  - Abdominal pain upper [Unknown]
  - Feeding disorder [Unknown]
  - Pain [Unknown]
